FAERS Safety Report 5416601-8 (Version None)
Quarter: 2007Q3

REPORT INFORMATION
  Report Type: 
  Country: None (occurrence: None)
  Receive Date: 20070814
  Receipt Date: 20070814
  Transmission Date: 20080115
  Serious: Yes (Other)
  Sender: FDA-Public Use
  Company Number: None

PATIENT
  Age: 66 Year
  Sex: Male
  Weight: 104.3273 kg

DRUGS (1)
  1. NEOMYCIN + POLYMYXIN B SULFATES + DEXAMETHASONE [Suspect]
     Indication: EYE INJURY
     Dosage: 2 DROPS LEFT EYE 4X DAILY OPHTHALMIC
     Route: 047
     Dates: start: 20070717, end: 20070721

REACTIONS (5)
  - EYE DISORDER [None]
  - INSTILLATION SITE PAIN [None]
  - PHARMACEUTICAL PRODUCT COMPLAINT [None]
  - VISION BLURRED [None]
  - VISUAL ACUITY REDUCED [None]
